FAERS Safety Report 25950706 (Version 1)
Quarter: 2025Q4

REPORT INFORMATION
  Report Type: Spontaneous
  Country: JP (occurrence: JP)
  Receive Date: 20251023
  Receipt Date: 20251023
  Transmission Date: 20260117
  Serious: Yes (Other)
  Sender: SANOFI AVENTIS
  Company Number: JP-SAKK-02696865

PATIENT
  Sex: Male

DRUGS (2)
  1. DUPIXENT [Suspect]
     Active Substance: DUPILUMAB
     Indication: Neurodermatitis
     Dosage: 1 KIT, QOW
     Route: 058
     Dates: start: 20250917
  2. DUPIXENT [Suspect]
     Active Substance: DUPILUMAB
     Dosage: 2 KITS
     Route: 058
     Dates: start: 20250903, end: 20250903

REACTIONS (1)
  - Lung neoplasm malignant [Unknown]
